FAERS Safety Report 4413852-6 (Version None)
Quarter: 2004Q3

REPORT INFORMATION
  Report Type: 
  Country: None (occurrence: None)
  Receive Date: 20040728
  Receipt Date: 20040709
  Transmission Date: 20050211
  Serious: No
  Sender: FDA-Public Use
  Company Number: 28877

PATIENT

DRUGS (1)
  1. BSS [Suspect]
     Indication: SURGERY
     Dosage: 15 ML SINGLE SURGICAL USE OPHT
     Route: 047
     Dates: start: 20040706, end: 20040706

REACTIONS (2)
  - KERATITIS [None]
  - POST PROCEDURAL COMPLICATION [None]
